FAERS Safety Report 22100353 (Version 1)
Quarter: 2023Q1

REPORT INFORMATION
  Report Type: Spontaneous
  Country: US (occurrence: US)
  Receive Date: 20230315
  Receipt Date: 20230315
  Transmission Date: 20230418
  Serious: No
  Sender: FDA-Public Use
  Company Number: US-009507513-2302USA005305

PATIENT
  Age: 16 Year
  Sex: Male

DRUGS (4)
  1. PRIMAXIN IV [Suspect]
     Active Substance: CILASTATIN SODIUM\IMIPENEM
     Indication: Central nervous system abscess
     Dosage: INCREASED FROM 2 G/DAY TO 4 G/DAY
  2. TACROLIMUS [Concomitant]
     Active Substance: TACROLIMUS
     Dosage: WEANED TO A TARGET TROUGH OF 5-8 NG/ML
  3. MYCOPHENOLATE MOFETIL [Concomitant]
     Active Substance: MYCOPHENOLATE MOFETIL
     Dosage: WEANED TO 590 MG/M2 BID
  4. HUMAN IMMUNOGLOBULIN G [Concomitant]
     Active Substance: HUMAN IMMUNOGLOBULIN G
     Dosage: 2 GRAM PER KILOGRAM
     Route: 042

REACTIONS (1)
  - Product use in unapproved indication [Unknown]
